FAERS Safety Report 19964241 (Version 1)
Quarter: 2021Q4

REPORT INFORMATION
  Report Type: Spontaneous
  Country: DE (occurrence: DE)
  Receive Date: 20211018
  Receipt Date: 20211018
  Transmission Date: 20220303
  Serious: Yes (Other)
  Sender: FDA-Public Use
  Company Number: None

PATIENT
  Age: 77 Year
  Sex: Male
  Weight: 92 kg

DRUGS (2)
  1. TAMSULOSIN [Suspect]
     Active Substance: TAMSULOSIN
     Indication: Pollakiuria
     Dosage: 1 DOSAGE FORM, QD (1 TIMES A DAY)
     Route: 048
     Dates: start: 20210820, end: 20210924
  2. TAMSULOSIN [Suspect]
     Active Substance: TAMSULOSIN
     Indication: Nocturia

REACTIONS (1)
  - Prostatic specific antigen increased [Not Recovered/Not Resolved]
